FAERS Safety Report 10783060 (Version 1)
Quarter: 2015Q1

REPORT INFORMATION
  Report Type: Spontaneous
  Country: FR (occurrence: FR)
  Receive Date: 20150210
  Receipt Date: 20150210
  Transmission Date: 20150721
  Serious: Yes (Death, Other)
  Sender: FDA-Public Use
  Company Number: FR-GILEAD-2015-0136041

PATIENT
  Age: 52 Year
  Sex: Male

DRUGS (5)
  1. SOVALDI [Suspect]
     Active Substance: SOFOSBUVIR
     Indication: HEPATITIS C
     Dosage: 1 DF, UNK
     Route: 048
     Dates: start: 201408, end: 20141116
  2. RIBAVIRINE BIOGARAN [Suspect]
     Active Substance: RIBAVIRIN
     Indication: HEPATITIS C
     Dosage: 5 DF, UNK
     Route: 048
     Dates: start: 201408, end: 20141116
  3. PANTOPRAZOLE [Concomitant]
     Active Substance: PANTOPRAZOLE SODIUM
     Dosage: 1 MG, QD
     Route: 048
  4. PEGASYS [Suspect]
     Active Substance: PEGINTERFERON ALFA-2A
     Indication: HEPATITIS C
     Dosage: 180 ?G, QD
     Route: 058
     Dates: start: 201408, end: 20141116
  5. SURMONTIL [Concomitant]
     Active Substance: TRIMIPRAMINE MALEATE
     Dosage: 0.5 MG, QD
     Route: 048

REACTIONS (2)
  - Portal vein thrombosis [Fatal]
  - Tumour invasion [Fatal]

NARRATIVE: CASE EVENT DATE: 20141221
